FAERS Safety Report 6522454-7 (Version None)
Quarter: 2009Q4

REPORT INFORMATION
  Report Type: 
  Country: None (occurrence: None)
  Receive Date: 20091224
  Receipt Date: 20091215
  Transmission Date: 20100525
  Serious: Yes (Hospitalization)
  Sender: FDA-Public Use
  Company Number: 2009AL007801

PATIENT
  Age: 66 Year
  Sex: Female

DRUGS (3)
  1. RIFAMPICIN [Suspect]
  2. ISONIAZID [Concomitant]
  3. ETHAMBUTOL HYDROCHLORIDE [Concomitant]

REACTIONS (6)
  - ACUTE HEPATIC FAILURE [None]
  - CARDIAC ARREST [None]
  - HEPATIC FAILURE [None]
  - INTERNATIONAL NORMALISED RATIO INCREASED [None]
  - NAUSEA [None]
  - NODULE [None]
